FAERS Safety Report 16201818 (Version 1)
Quarter: 2019Q2

REPORT INFORMATION
  Report Type: Spontaneous
  Country: US (occurrence: US)
  Receive Date: 20190312
  Receipt Date: 20190312
  Transmission Date: 20190711
  Serious: No
  Sender: FDA-Public Use
  Company Number: None

PATIENT
  Age: 85 Year
  Sex: Male
  Weight: 90.72 kg

DRUGS (1)
  1. AMOX-CLAV 500-125MG TABLET [Suspect]
     Active Substance: AMOXICILLIN\CLAVULANATE POTASSIUM
     Indication: PRODUCT USED FOR UNKNOWN INDICATION
     Dosage: ?          OTHER STRENGTH:500-125MG;QUANTITY:1 DF DOSAGE FORM;?
     Route: 048
     Dates: start: 20190218, end: 20190220

REACTIONS (2)
  - Dysuria [None]
  - Fear [None]

NARRATIVE: CASE EVENT DATE: 20190220
